FAERS Safety Report 7758579-8 (Version None)
Quarter: 2011Q3

REPORT INFORMATION
  Report Type: 
  Country: None (occurrence: None)
  Receive Date: 20110919
  Receipt Date: 20110907
  Transmission Date: 20111222
  Serious: Yes (Hospitalization, Other)
  Sender: FDA-Public Use
  Company Number: CA-ELI_LILLY_AND_COMPANY-CA201109001614

PATIENT
  Sex: Male

DRUGS (21)
  1. ZYPREXA ZYDIS [Suspect]
     Indication: BIPOLAR DISORDER
     Dosage: 5 MG, UNK
  2. IMOVANE [Concomitant]
  3. LOXAPINE HCL [Concomitant]
  4. SINEMET [Concomitant]
  5. ZYPREXA [Suspect]
     Dosage: 15 MG, UNK
  6. ZYPREXA [Suspect]
     Dosage: 5 MG, UNK
  7. LAMICTAL [Concomitant]
  8. NOZINAN [Concomitant]
  9. ZYPREXA [Suspect]
     Dosage: 20 MG, UNK
  10. LITHIUM CARBONATE [Concomitant]
  11. ZYPREXA [Suspect]
     Dosage: 17.5 MG, UNK
  12. ZYPREXA ZYDIS [Suspect]
     Dosage: 10 MG, UNK
  13. TEMAZEPAM [Concomitant]
  14. ZYPREXA [Suspect]
     Dosage: 12.5 MG, UNK
  15. CLONAZEPAM [Concomitant]
  16. TOPAMAX [Concomitant]
  17. COGENTIN [Concomitant]
  18. EFFEXOR [Concomitant]
  19. SEROQUEL [Concomitant]
  20. ZYPREXA [Suspect]
     Indication: BIPOLAR DISORDER
     Dosage: 10 MG, UNK
  21. FLUANXOL [Concomitant]

REACTIONS (13)
  - THROMBOCYTOPENIA [None]
  - HYPERTENSION [None]
  - HYPERTRIGLYCERIDAEMIA [None]
  - HEPATIC ENZYME ABNORMAL [None]
  - BLOOD CHOLESTEROL INCREASED [None]
  - HYPOALBUMINAEMIA [None]
  - TRISMUS [None]
  - VISION BLURRED [None]
  - BLOOD AMYLASE DECREASED [None]
  - CONVULSION [None]
  - WEIGHT INCREASED [None]
  - DIABETES MELLITUS [None]
  - LYMPHOPENIA [None]
